FAERS Safety Report 9336624 (Version 6)
Quarter: 2014Q2

REPORT INFORMATION
  Report Type: Spontaneous
  Country: US (occurrence: US)
  Receive Date: 20130607
  Receipt Date: 20140527
  Transmission Date: 20141212
  Serious: Yes (Hospitalization)
  Sender: FDA-Public Use
  Company Number: US-PFIZER INC-2013171531

PATIENT
  Age: 65 Year
  Sex: Female
  Weight: 90.25 kg

DRUGS (5)
  1. CELEBREX [Suspect]
     Indication: ARTHRALGIA
     Dosage: 200 MG, DAILY
     Dates: start: 2005
  2. CELEBREX [Suspect]
     Indication: BONE DISORDER
     Dosage: UNKNOWN DOSE 2-3 TIMES IN A WEEK
     Dates: end: 201304
  3. CADUET [Suspect]
     Indication: BLOOD CHOLESTEROL INCREASED
     Dosage: (AMLODIPINE BESILATE 10 MG / ATORVASTATIN CALCIUM 20 MG), DAILY
     Dates: start: 2010, end: 2013
  4. CADUET [Suspect]
     Indication: HYPERTENSION
  5. GLIPIZIDE [Concomitant]
     Indication: DIABETES MELLITUS
     Dosage: 5 MG, 2X/DAY

REACTIONS (5)
  - Malaise [Unknown]
  - Peripheral swelling [Recovered/Resolved]
  - Arthralgia [Unknown]
  - Joint swelling [Recovered/Resolved]
  - Bone swelling [Recovered/Resolved]
